FAERS Safety Report 21556675 (Version 1)
Quarter: 2022Q4

REPORT INFORMATION
  Report Type: Spontaneous
  Country: CN (occurrence: CN)
  Receive Date: 20221104
  Receipt Date: 20221104
  Transmission Date: 20230112
  Serious: Yes (Hospitalization, Disabling, Other)
  Sender: FDA-Public Use
  Company Number: None

PATIENT
  Age: 65 Year
  Sex: Male
  Weight: 54 kg

DRUGS (13)
  1. CYCLOPHOSPHAMIDE [Suspect]
     Active Substance: CYCLOPHOSPHAMIDE
     Indication: Neoplasm malignant
     Dosage: 1.13 G, QD, DILUTED WITH 500 ML OF 0.9 % SODIUM CHLORIDE.
     Route: 041
     Dates: start: 20221004, end: 20221004
  2. CYCLOPHOSPHAMIDE [Suspect]
     Active Substance: CYCLOPHOSPHAMIDE
     Indication: Chemotherapy
  3. SODIUM CHLORIDE [Suspect]
     Active Substance: SODIUM CHLORIDE
     Indication: Medication dilution
     Dosage: 500 ML,QD, USED TO DILUTE 1.13G CYCLOPHOSPHAMIDE.
     Route: 041
     Dates: start: 20221004, end: 20221004
  4. SODIUM CHLORIDE [Suspect]
     Active Substance: SODIUM CHLORIDE
     Dosage: 500 ML, QD, USED TO DILUTE 0.1 G ETOPOSIDE.
     Route: 041
     Dates: start: 20221004, end: 20221006
  5. SODIUM CHLORIDE [Suspect]
     Active Substance: SODIUM CHLORIDE
     Dosage: 500 ML, QD, USED TO DILUTE 0.05 G ETOPOSIDE.
     Route: 041
     Dates: start: 20221004, end: 20221006
  6. SODIUM CHLORIDE [Suspect]
     Active Substance: SODIUM CHLORIDE
     Dosage: 100 ML, QD, USED TO DILUTE 2MG VINCRISTINE SULFATE.
     Route: 041
     Dates: start: 20221004, end: 20221004
  7. DEXTROSE MONOHYDRATE [Suspect]
     Active Substance: DEXTROSE MONOHYDRATE
     Indication: Medication dilution
     Dosage: 250 ML, QD, USED TO DILUTE 70MG PIRARUBICIN HYDROCHLORIDE. FORMULATION: INJECTION
     Route: 041
     Dates: start: 20221004, end: 20221004
  8. ETOPOSIDE [Suspect]
     Active Substance: ETOPOSIDE
     Indication: Neoplasm malignant
     Dosage: 0.1G, QD, DILUTED WITH 500 ML OF 0.9 % SODIUM CHLORIDE.
     Route: 041
     Dates: start: 20221004, end: 20221006
  9. ETOPOSIDE [Suspect]
     Active Substance: ETOPOSIDE
     Indication: Chemotherapy
     Dosage: 0.05G, QD, DILUTED WITH 500 ML OF 0.9 % SODIUM CHLORIDE.
     Route: 041
     Dates: start: 20221004, end: 20221006
  10. PIRARUBICIN HYDROCHLORIDE [Suspect]
     Active Substance: PIRARUBICIN HYDROCHLORIDE
     Indication: Neoplasm malignant
     Dosage: 70 MG, QD, DILUTED WITH 250 ML OF 5% GLUCOSE INJECTION.
     Route: 041
     Dates: start: 20221004, end: 20221004
  11. PIRARUBICIN HYDROCHLORIDE [Suspect]
     Active Substance: PIRARUBICIN HYDROCHLORIDE
     Indication: Chemotherapy
  12. VINCRISTINE SULFATE [Suspect]
     Active Substance: VINCRISTINE SULFATE
     Indication: Neoplasm malignant
     Dosage: 2 MG, QD, DILUTED WITH 100 ML OF 0.9% SODIUM CHLORIDE.
     Route: 041
     Dates: start: 20221004, end: 20221004
  13. VINCRISTINE SULFATE [Suspect]
     Active Substance: VINCRISTINE SULFATE
     Indication: Chemotherapy

REACTIONS (1)
  - Myelosuppression [Recovering/Resolving]

NARRATIVE: CASE EVENT DATE: 20221013
